FAERS Safety Report 17113677 (Version 2)
Quarter: 2020Q1

REPORT INFORMATION
  Report Type: Spontaneous
  Country: US (occurrence: US)
  Receive Date: 20191205
  Receipt Date: 20200313
  Transmission Date: 20200409
  Serious: No
  Sender: FDA-Public Use
  Company Number: US-LUPIN PHARMACEUTICALS INC.-2019-06287

PATIENT
  Age: 65 Year
  Sex: Female
  Weight: 65.76 kg

DRUGS (3)
  1. QUETIAPINE FUMARATE EXTENDED-RELEASE TABLETS, 200 MG [Suspect]
     Active Substance: QUETIAPINE FUMARATE
     Indication: ANXIETY
  2. QUETIAPINE FUMARATE EXTENDED-RELEASE TABLETS, 200 MG [Suspect]
     Active Substance: QUETIAPINE FUMARATE
     Indication: DEPRESSION
     Dosage: 200 MILLIGRAM, QD
     Route: 048
     Dates: start: 2017
  3. CLONAZEPAM. [Concomitant]
     Active Substance: CLONAZEPAM
     Indication: ANXIETY
     Dosage: UNK, AS NEEDED
     Route: 048

REACTIONS (4)
  - Product dose omission [Unknown]
  - Low density lipoprotein increased [Not Recovered/Not Resolved]
  - Blood cholesterol increased [Not Recovered/Not Resolved]
  - Insomnia [Unknown]

NARRATIVE: CASE EVENT DATE: 20190923
